FAERS Safety Report 19426561 (Version 1)
Quarter: 2021Q2

REPORT INFORMATION
  Report Type: Spontaneous
  Country: US (occurrence: US)
  Receive Date: 20210617
  Receipt Date: 20210617
  Transmission Date: 20210717
  Serious: Yes (Other)
  Sender: FDA-Public Use
  Company Number: US-STRIDES ARCOLAB LIMITED-2021SP002729

PATIENT
  Sex: Male

DRUGS (7)
  1. MEMANTINE. [Suspect]
     Active Substance: MEMANTINE
     Indication: SEIZURE
     Dosage: 5 MILLIGRAM PER DAY AT THE AGE OF 16.11 YEARS
     Route: 065
  2. VALPROATE [Suspect]
     Active Substance: VALPROIC ACID
     Indication: SEIZURE
     Dosage: UNK
     Route: 065
  3. LEVETIRACETAM. [Suspect]
     Active Substance: LEVETIRACETAM
     Indication: SEIZURE
     Dosage: UNK
     Route: 065
  4. LACOSAMIDE. [Suspect]
     Active Substance: LACOSAMIDE
     Indication: SEIZURE
     Dosage: UNK
     Route: 065
  5. TOPIRAMATE. [Suspect]
     Active Substance: TOPIRAMATE
     Indication: SEIZURE
     Dosage: UNK
     Route: 065
  6. LAMOTRIGINE. [Suspect]
     Active Substance: LAMOTRIGINE
     Indication: SEIZURE
     Dosage: UNK
     Route: 065
  7. ZONISAMIDE. [Suspect]
     Active Substance: ZONISAMIDE
     Indication: SEIZURE
     Dosage: UNK
     Route: 065

REACTIONS (2)
  - Off label use [Unknown]
  - Drug ineffective [Unknown]
